FAERS Safety Report 8347484-4 (Version None)
Quarter: 2012Q2

REPORT INFORMATION
  Report Type: 
  Country: None (occurrence: None)
  Receive Date: 20120509
  Receipt Date: 20120430
  Transmission Date: 20120825
  Serious: Yes (Disabling)
  Sender: FDA-Public Use
  Company Number: US-ASTRAZENECA-2012SE28184

PATIENT
  Age: 61 Year
  Sex: Female

DRUGS (17)
  1. MAGNESIUM [Concomitant]
     Dosage: TWO TIMES A DAY
  2. METOLAZONE [Concomitant]
  3. TOPICORT [Concomitant]
     Dosage: TWO TIMES A DAY
  4. VITAMIN D [Concomitant]
  5. TACROLIMUS [Concomitant]
     Dosage: DAILY
  6. REVATIO [Concomitant]
  7. PROVENTIL-HFA [Concomitant]
     Dosage: AS REQUIRED
  8. FLUOCINONIDE [Concomitant]
     Dosage: DAILY
  9. KRILL OIL [Concomitant]
  10. GABAPENTIN [Concomitant]
  11. TYLENOL (CAPLET) [Concomitant]
  12. REFRESH [Concomitant]
     Dosage: TWO TIMES A DAY
  13. PEDIATRIC MULTIVITAMIN MINERALS [Concomitant]
     Dosage: DAILY
  14. NEXIUM [Suspect]
     Route: 048
  15. DULERA [Concomitant]
     Dosage: DAILY
  16. POTASSIUM CHLORIDE [Concomitant]
  17. VITAMIN B-12 [Concomitant]
     Dosage: 2000 MG 1/2 TAB DAILY

REACTIONS (11)
  - ASTHMA [None]
  - GASTROOESOPHAGEAL REFLUX DISEASE [None]
  - ARTHROPATHY [None]
  - SJOGREN'S SYNDROME [None]
  - SCLERODERMA [None]
  - PULMONARY HYPERTENSION [None]
  - FIBROMYALGIA [None]
  - GLAUCOMA [None]
  - RAYNAUD'S PHENOMENON [None]
  - MUSCLE CONTRACTIONS INVOLUNTARY [None]
  - SKIN DISORDER [None]
